FAERS Safety Report 7492207-4 (Version None)
Quarter: 2011Q2

REPORT INFORMATION
  Report Type: 
  Country: None (occurrence: None)
  Receive Date: 20110519
  Receipt Date: 20101109
  Transmission Date: 20111010
  Serious: No
  Sender: FDA-Public Use
  Company Number: US-NOVEN-ALL1-2010-05881

PATIENT
  Sex: Male
  Weight: 36.281 kg

DRUGS (2)
  1. DAYTRANA [Suspect]
     Dosage: UNK MG, (PINK BOX)1X/DAY:QD
     Route: 062
     Dates: start: 20050101, end: 20101106
  2. DAYTRANA [Suspect]
     Dosage: 30 MG, 1X/DAY:QD
     Route: 062
     Dates: start: 20101107

REACTIONS (5)
  - CONDITION AGGRAVATED [None]
  - DRUG EFFECT DECREASED [None]
  - ANGER [None]
  - NEGATIVISM [None]
  - AGGRESSION [None]
